FAERS Safety Report 6706881-0 (Version None)
Quarter: 2010Q2

REPORT INFORMATION
  Report Type: 
  Country: None (occurrence: None)
  Receive Date: 20100430
  Receipt Date: 20100430
  Transmission Date: 20101027
  Serious: No
  Sender: FDA-Public Use
  Company Number: None

PATIENT
  Age: 37 Year
  Sex: Female
  Weight: 84.369 kg

DRUGS (1)
  1. NEURONTIN [Suspect]
     Indication: INTERVERTEBRAL DISC PROTRUSION
     Dosage: 600MG
     Dates: start: 20070330, end: 20070530

REACTIONS (6)
  - ABNORMAL DREAMS [None]
  - AMNESIA [None]
  - INSOMNIA [None]
  - LOSS OF EMPLOYMENT [None]
  - NIGHTMARE [None]
  - THINKING ABNORMAL [None]
